FAERS Safety Report 24295074 (Version 2)
Quarter: 2024Q3

REPORT INFORMATION
  Report Type: Spontaneous
  Country: ES (occurrence: ES)
  Receive Date: 20240907
  Receipt Date: 20240925
  Transmission Date: 20241016
  Serious: Yes (Other)
  Sender: AUROBINDO
  Company Number: ES-AUROBINDO-AUR-APL-2024-039335

PATIENT
  Age: 36 Year
  Sex: Female
  Weight: 83.3 kg

DRUGS (24)
  1. EBASTINE [Suspect]
     Active Substance: EBASTINE
     Indication: Product used for unknown indication
     Dosage: 20 MILLIGRAM, DAILY (20 TABLETS 1 TABLET/24 H)
     Route: 048
  2. EBASTINE [Suspect]
     Active Substance: EBASTINE
     Dosage: UNK (SPORADIC USE)
     Route: 065
  3. ZOLPIDEM [Suspect]
     Active Substance: ZOLPIDEM TARTRATE
     Indication: Product used for unknown indication
     Dosage: 10 MILLIGRAM, ONCE A DAY (10 MG 30 TABLETS/1 C/24 H 0 - 0 - 0 - 1)
     Route: 048
  4. PREGABALIN [Suspect]
     Active Substance: PREGABALIN
     Indication: Product used for unknown indication
     Dosage: 75 MILLIGRAM, DAILY (75 MG 56 TABLETS/2 C/24 H/0 - 0 - 2 - 0)
     Route: 048
  5. FENTANYL [Suspect]
     Active Substance: FENTANYL\FENTANYL CITRATE
     Indication: Product used for unknown indication
     Dosage: 200 MCG, ONCE A DAY (200 MCG 30 TABLETS SUCK/1 TABLET/24 H)
     Route: 048
  6. FENTANYL [Suspect]
     Active Substance: FENTANYL\FENTANYL CITRATE
     Dosage: 133 MCG 30 COMP SUBLIN/1 TABLET/24 H
     Route: 060
  7. LEVOTHYROXINE [Suspect]
     Active Substance: LEVOTHYROXINE\LEVOTHYROXINE SODIUM
     Indication: Product used for unknown indication
     Dosage: 75 MCG, ONCE A DAY (75 MCG 100 TABLETS/1 TABLET/24 H/1 - 0 - 0 - 0)
     Route: 048
  8. HYDROMORPHONE [Suspect]
     Active Substance: HYDROMORPHONE
     Indication: Product used for unknown indication
     Dosage: 8 MILLIGRAM, TWO TIMES A DAY (8 MG 56 TABLETS/2 COMP/24 H/0 - 0 - 0 - 2)
     Route: 048
  9. TERBUTALINE [Suspect]
     Active Substance: TERBUTALINE
     Indication: Product used for unknown indication
     Dosage: 500 MCG (TURBUHALER 500 MCG/INH /1 INH/24 H)
  10. TRYPTIZOL [Suspect]
     Active Substance: AMITRIPTYLINE HYDROCHLORIDE
     Indication: Product used for unknown indication
     Dosage: 25 MILLIGRAM, DAILY  (ONE TABLET/DAY (0 - 0 - 0 -1))
     Route: 048
  11. OMEPRAZOLE [Concomitant]
     Active Substance: OMEPRAZOLE
     Indication: Product used for unknown indication
     Dosage: 1 DOSAGE FORM, DAILY (ONE CAP/DAY (0 - 0 - 1 - 0))
     Route: 048
  12. PALLADONE [Concomitant]
     Active Substance: HYDROMORPHONE HYDROCHLORIDE
     Indication: Product used for unknown indication
     Dosage: 2 DOSAGE FORM, DAILY (2 TABLETS/DAY (0 - 0 - 0 - 2))
     Route: 048
  13. LEVOTHYROXINE SODIUM [Concomitant]
     Active Substance: LEVOTHYROXINE SODIUM
     Indication: Product used for unknown indication
     Dosage: 75 MICROGRAM, DAILY  (ONE TABLET/DAY (1 - 0 - 0 - 0))
     Route: 048
  14. TOPIRAMATE [Concomitant]
     Active Substance: TOPIRAMATE
     Indication: Product used for unknown indication
     Dosage: 2 DOSAGE FORM, DAILY (2 TABLETS/DAY (0 - 0 - 2 -0))
     Route: 048
  15. THIAMINE HYDROCHLORIDE [Concomitant]
     Active Substance: THIAMINE HYDROCHLORIDE
     Indication: Product used for unknown indication
     Dosage: UNK (ONE TABLET/7DAYS (1 - 0 - 0 -0) )
     Route: 048
  16. BECLOMETHASONE [Concomitant]
     Active Substance: BECLOMETHASONE
     Indication: Product used for unknown indication
     Dosage: UNK (ONE INH./12 H)
  17. CYANOCOBALAMIN [Concomitant]
     Active Substance: CYANOCOBALAMIN
     Indication: Product used for unknown indication
     Dosage: 1000 MCG (1000 MCG 8 AMP/1 AMP/0 DAYS)
     Route: 065
  18. CALCIFEDIOL [Concomitant]
     Active Substance: CALCIFEDIOL
     Indication: Product used for unknown indication
     Dosage: 0.266 MG 10 CAPS/1 CAP/30 DAYS
     Route: 048
  19. FLUTICASONE [Concomitant]
     Active Substance: FLUTICASONE
     Indication: Product used for unknown indication
     Dosage: 27.5 MCG, TWO TIMES A DAY (27.5 MCG/PULV/2 PCS/24 H)
  20. FENTANYL [Concomitant]
     Active Substance: FENTANYL\FENTANYL CITRATE
     Indication: Product used for unknown indication
     Dosage: 1 DOSAGE FORM, DAILY (ONE TABLET/DAY)
     Route: 060
  21. EPINEPHRINE [Concomitant]
     Active Substance: EPINEPHRINE
     Indication: Product used for unknown indication
     Dosage: 300 MCG INY
     Route: 065
  22. ACETAMINOPHEN [Concomitant]
     Active Substance: ACETAMINOPHEN
     Indication: Product used for unknown indication
     Dosage: 1 GRAM, TWO TIMES A DAY (1 G 40 COMP/1 TABLET/12 H)
     Route: 048
  23. THIAMINE [Concomitant]
     Active Substance: THIAMINE
     Indication: Product used for unknown indication
     Dosage: 300 MILLIGRAM (300 MG 20 TABLETS/1 COMP/7 DAYS/1 - 0 - 0 - 0)
     Route: 048
  24. ELETRIPTAN [Concomitant]
     Active Substance: ELETRIPTAN
     Indication: Product used for unknown indication
     Dosage: 40 MILLIGRAM, DAILY (40 MG 4 TABLETS /1 TABLET/24 H)
     Route: 048

REACTIONS (11)
  - Sedation [Unknown]
  - Cardiotoxicity [Unknown]
  - Drug interaction [Recovered/Resolved]
  - Fatigue [Recovered/Resolved]
  - Somnolence [Recovered/Resolved]
  - Depressed mood [Recovered/Resolved]
  - Irritability [Recovered/Resolved]
  - Pain [Recovered/Resolved]
  - Apathy [Recovered/Resolved]
  - Antisocial behaviour [Recovered/Resolved]
  - Decreased activity [Recovered/Resolved]
